FAERS Safety Report 4810181-3 (Version None)
Quarter: 2005Q4

REPORT INFORMATION
  Report Type: 
  Country: None (occurrence: None)
  Receive Date: 20051026
  Receipt Date: 20051017
  Transmission Date: 20060501
  Serious: Yes (Other)
  Sender: FDA-Public Use
  Company Number: US-MERCK-0510USA07398

PATIENT
  Age: 63 Year
  Sex: Male

DRUGS (1)
  1. INVANZ [Suspect]
     Route: 042
     Dates: start: 20051004, end: 20051010

REACTIONS (8)
  - AGITATION [None]
  - CONFUSIONAL STATE [None]
  - HAEMODIALYSIS [None]
  - HALLUCINATION [None]
  - INCORRECT DOSE ADMINISTERED [None]
  - INSOMNIA [None]
  - MYOCLONIC EPILEPSY [None]
  - OVERDOSE [None]
